FAERS Safety Report 8194075-4 (Version None)
Quarter: 2012Q1

REPORT INFORMATION
  Report Type: 
  Country: None (occurrence: None)
  Receive Date: 20120308
  Receipt Date: 20120228
  Transmission Date: 20120608
  Serious: Yes (Hospitalization)
  Sender: FDA-Public Use
  Company Number: FR-MERCK-1103FRA00015B1

PATIENT
  Sex: Female

DRUGS (2)
  1. NICARDIPINE HYDROCHLORIDE [Concomitant]
     Route: 064
  2. JANUVIA [Suspect]
     Indication: TYPE 2 DIABETES MELLITUS
     Route: 064
     Dates: start: 20100901, end: 20101201

REACTIONS (3)
  - CAESAREAN SECTION [None]
  - FEEDING DISORDER NEONATAL [None]
  - MATERNAL DRUGS AFFECTING FOETUS [None]
